FAERS Safety Report 5939582-7 (Version None)
Quarter: 2008Q4

REPORT INFORMATION
  Report Type: 
  Country: None (occurrence: None)
  Receive Date: 20081030
  Receipt Date: 20081017
  Transmission Date: 20090506
  Serious: Yes (Other)
  Sender: FDA-Public Use
  Company Number: TPA2008A01640

PATIENT
  Age: 75 Year
  Sex: Male

DRUGS (20)
  1. ACTOS [Suspect]
     Indication: DIABETES MELLITUS INADEQUATE CONTROL
     Dosage: 30 MG, 1 IN 1 D, PER ORAL 45 MG, PER ORAL 22.5 MG, PER ORAL
     Route: 048
     Dates: start: 20060927, end: 20080212
  2. ACTOS [Suspect]
     Indication: DIABETES MELLITUS INADEQUATE CONTROL
     Dosage: 30 MG, 1 IN 1 D, PER ORAL 45 MG, PER ORAL 22.5 MG, PER ORAL
     Route: 048
     Dates: start: 20020101
  3. ACTOS [Suspect]
     Indication: DIABETES MELLITUS INADEQUATE CONTROL
     Dosage: 30 MG, 1 IN 1 D, PER ORAL 45 MG, PER ORAL 22.5 MG, PER ORAL
     Route: 048
     Dates: start: 20050101
  4. ACTOS [Suspect]
     Indication: DIABETES MELLITUS INADEQUATE CONTROL
     Dosage: 30 MG, 1 IN 1 D, PER ORAL 45 MG, PER ORAL 22.5 MG, PER ORAL
     Route: 048
     Dates: start: 20060501
  5. LIPITOR [Concomitant]
  6. CORDARONE [Concomitant]
  7. COUMADIN [Concomitant]
  8. RYTHTNOL (PROPAFENONE HYDROCHLORIDE) [Concomitant]
  9. ATENOLOL [Concomitant]
  10. FOLIC ACID [Concomitant]
  11. COLACE (DOCUSATE SODIUM) [Concomitant]
  12. ASPIRIN [Concomitant]
  13. ACETAMINOPHEN [Concomitant]
  14. DARVOCET (PARACETAMOL, DEXTROPROPOXYPHENE NAPSILATE) [Concomitant]
  15. IBUPROFEN [Concomitant]
  16. GLIPIZIDE [Concomitant]
  17. SPIRONOLACTONE [Concomitant]
  18. LASIX [Concomitant]
  19. FINASTERIDE [Concomitant]
  20. FLOMAX [Concomitant]

REACTIONS (6)
  - ATROPHY [None]
  - CEREBROVASCULAR ACCIDENT [None]
  - LACUNAR INFARCTION [None]
  - OEDEMA [None]
  - OEDEMA PERIPHERAL [None]
  - TRANSIENT ISCHAEMIC ATTACK [None]
